FAERS Safety Report 12863887 (Version 2)
Quarter: 2016Q4

REPORT INFORMATION
  Report Type: Spontaneous
  Country: RU (occurrence: RU)
  Receive Date: 20161019
  Receipt Date: 20161021
  Transmission Date: 20170207
  Serious: Yes (Other)
  Sender: FDA-Public Use
  Company Number: RU-ABBVIE-16P-251-1753895-00

PATIENT
  Age: 4 Year
  Sex: Male
  Weight: 20 kg

DRUGS (4)
  1. ANALGIN [Concomitant]
     Active Substance: METAMIZOLE SODIUM
     Indication: ANAESTHESIA
     Route: 042
     Dates: start: 20160929, end: 20160929
  2. SEVOFRANE [Suspect]
     Active Substance: SEVOFLURANE
     Indication: GENERAL ANAESTHESIA
     Dosage: 8 VOL%
     Route: 055
     Dates: start: 20160929, end: 20160929
  3. SEVOFRANE [Suspect]
     Active Substance: SEVOFLURANE
     Dosage: 3.5 VOL%
     Route: 055
     Dates: start: 20160929, end: 20160929
  4. SEVOFRANE [Suspect]
     Active Substance: SEVOFLURANE
     Dosage: 6-8 VOL%
     Route: 055
     Dates: start: 20160929, end: 20160929

REACTIONS (5)
  - Endotracheal intubation complication [Recovered/Resolved]
  - Heart rate increased [Recovered/Resolved]
  - Laryngospasm [Recovered/Resolved]
  - Drug ineffective [Recovered/Resolved]
  - Bronchospasm [Recovered/Resolved]

NARRATIVE: CASE EVENT DATE: 20160929
